FAERS Safety Report 8079649-3 (Version None)
Quarter: 2012Q1

REPORT INFORMATION
  Report Type: 
  Country: None (occurrence: None)
  Receive Date: 20120128
  Receipt Date: 20110818
  Transmission Date: 20120608
  Serious: Yes (Hospitalization, Other)
  Sender: FDA-Public Use
  Company Number: US-ABBOTT-11P-163-0845542-00

PATIENT
  Sex: Female
  Weight: 61.29 kg

DRUGS (7)
  1. CAPADEX [Concomitant]
     Indication: GASTROOESOPHAGEAL REFLUX DISEASE
  2. HUMIRA [Suspect]
     Indication: CROHN'S DISEASE
     Dates: start: 20090101, end: 20100901
  3. CALCIUM WITH VITAMIN D [Concomitant]
     Indication: VITAMIN SUPPLEMENTATION
  4. ASPIRIN [Concomitant]
     Indication: CARDIAC OPERATION
  5. ASCORBIC ACID [Concomitant]
     Indication: VITAMIN SUPPLEMENTATION
  6. IRON [Concomitant]
     Indication: MINERAL SUPPLEMENTATION
  7. VITAMIN TAB [Concomitant]
     Indication: VITAMIN SUPPLEMENTATION

REACTIONS (4)
  - DEHYDRATION [None]
  - ABSCESS [None]
  - INFLAMMATION [None]
  - ABDOMINAL PAIN [None]
